FAERS Safety Report 5248008-0 (Version None)
Quarter: 2007Q1

REPORT INFORMATION
  Report Type: 
  Country: None (occurrence: None)
  Receive Date: 20070226
  Receipt Date: 20070226
  Transmission Date: 20070707
  Serious: Yes (Other)
  Sender: FDA-Public Use
  Company Number: None

PATIENT
  Sex: Female
  Weight: 52.1637 kg

DRUGS (1)
  1. JOLESSA 0.015/0.03 BARR [Suspect]
     Indication: CONTRACEPTION
     Dosage: 1 TAB QD PO
     Route: 048
     Dates: start: 20061220, end: 20070121

REACTIONS (2)
  - HAEMORRHAGE [None]
  - PHARMACEUTICAL PRODUCT COMPLAINT [None]
